FAERS Safety Report 6527079-5 (Version None)
Quarter: 2010Q1

REPORT INFORMATION
  Report Type: 
  Country: None (occurrence: None)
  Receive Date: 20100105
  Receipt Date: 20100104
  Transmission Date: 20100710
  Serious: Yes (Hospitalization)
  Sender: FDA-Public Use
  Company Number: US-B.I. PHARMACEUTICALS,INC./RIDGEFIELD-2009-BP-09902BP

PATIENT
  Sex: Male
  Weight: 78 kg

DRUGS (9)
  1. SPIRIVA [Suspect]
     Indication: CHRONIC OBSTRUCTIVE PULMONARY DISEASE
     Dosage: 18 MCG
     Route: 055
     Dates: start: 20081201, end: 20090911
  2. SPIRIVA [Suspect]
     Indication: EMPHYSEMA
  3. IPRATROPIUM [Suspect]
     Indication: RHINORRHOEA
     Route: 045
     Dates: start: 20081201
  4. TOPROL-XL [Concomitant]
     Indication: HYPERTENSION
  5. LIPITOR [Concomitant]
     Indication: BLOOD CHOLESTEROL INCREASED
  6. PRILOSEC [Concomitant]
     Indication: GASTROOESOPHAGEAL REFLUX DISEASE
  7. ASPIRIN [Concomitant]
     Indication: PROPHYLAXIS
  8. CLARITIN (GENERIC) [Concomitant]
     Indication: SEASONAL ALLERGY
  9. DICYCLOMINE [Concomitant]
     Indication: MUSCLE SPASMS
     Dosage: 20 MG

REACTIONS (6)
  - COUGH [None]
  - DYSPHONIA [None]
  - GALLBLADDER DISORDER [None]
  - PARAESTHESIA [None]
  - THROAT IRRITATION [None]
  - URINARY RETENTION [None]
